FAERS Safety Report 22046286 (Version 3)
Quarter: 2024Q1

REPORT INFORMATION
  Report Type: Spontaneous
  Country: JP (occurrence: JP)
  Receive Date: 20230228
  Receipt Date: 20240328
  Transmission Date: 20240410
  Serious: Yes (Hospitalization)
  Sender: FDA-Public Use
  Company Number: JP-MLMSERVICE-20230217-4112845-1

PATIENT
  Age: 58 Year
  Sex: Female

DRUGS (2)
  1. DOCETAXEL [Suspect]
     Active Substance: DOCETAXEL\DOCETAXEL ANHYDROUS
     Indication: Uterine cancer
     Dosage: UNK UNK, CYCLIC
  2. CARBOPLATIN [Suspect]
     Active Substance: CARBOPLATIN
     Indication: Uterine cancer
     Dosage: UNK, CYCLIC

REACTIONS (1)
  - Aortitis [Recovering/Resolving]
